FAERS Safety Report 11291601 (Version 1)
Quarter: 2015Q3

REPORT INFORMATION
  Report Type: Spontaneous
  Country: US (occurrence: US)
  Receive Date: 20150722
  Receipt Date: 20150722
  Transmission Date: 20151125
  Serious: No
  Sender: FDA-Public Use
  Company Number: US-PFIZER INC-2015231819

PATIENT
  Sex: Female
  Weight: 82 kg

DRUGS (1)
  1. PROCARDIA [Suspect]
     Active Substance: NIFEDIPINE
     Dosage: EVERY 3 WEEKS

REACTIONS (2)
  - Cough [Unknown]
  - Drug hypersensitivity [Unknown]
